FAERS Safety Report 5347950-X (Version None)
Quarter: 2007Q2

REPORT INFORMATION
  Report Type: 
  Country: None (occurrence: None)
  Receive Date: 20070606
  Receipt Date: 20070524
  Transmission Date: 20071010
  Serious: Yes (Hospitalization, Other)
  Sender: FDA-Public Use
  Company Number: US-AVENTIS-200713838US

PATIENT
  Sex: Female

DRUGS (14)
  1. LANTUS [Suspect]
     Dosage: DOSE: 18-20 U
     Route: 051
     Dates: end: 20070522
  2. NOVOLOG [Concomitant]
     Dosage: DOSE: SLIDING SCALE
  3. HYDRALAZINE HCL [Concomitant]
     Dosage: DOSE: UNK
  4. CARTIA XT                          /00489701/ [Concomitant]
     Dosage: DOSE: UNK
  5. BUMEX [Concomitant]
     Dosage: DOSE: UNK
  6. LEVOXYL [Concomitant]
     Dosage: DOSE: UNK
  7. TUMS                               /00108001/ [Concomitant]
     Dosage: DOSE: UNK
  8. VIT D [Concomitant]
     Dosage: DOSE: UNK
  9. PROFERRIN ES [Concomitant]
     Dosage: DOSE: UNK
  10. COZAAR [Concomitant]
     Dosage: DOSE: UNK
  11. ASPIRIN [Concomitant]
  12. ARANESP [Concomitant]
     Dosage: DOSE: UNK
     Route: 051
  13. METOLAZONE [Concomitant]
     Dosage: DOSE: UNK
  14. INSULIN PUMP [Concomitant]
     Dosage: DOSE: UNK
     Dates: start: 20070523

REACTIONS (5)
  - BLOOD GLUCOSE FLUCTUATION [None]
  - BLOOD PRESSURE FLUCTUATION [None]
  - GENERALISED OEDEMA [None]
  - HYPERTENSION [None]
  - RENAL DISORDER [None]
